FAERS Safety Report 13569321 (Version 2)
Quarter: 2017Q2

REPORT INFORMATION
  Report Type: Spontaneous
  Country: DE (occurrence: DE)
  Receive Date: 20170522
  Receipt Date: 20170623
  Transmission Date: 20170830
  Serious: Yes (Other)
  Sender: FDA-Public Use
  Company Number: DE-PFIZER INC-2017216157

PATIENT
  Age: 69 Year
  Sex: Male
  Weight: 74 kg

DRUGS (25)
  1. CITALOPRAM 1 A PHARMA [Concomitant]
     Dosage: 10 MG, 1X/DAY
  2. MELPERON 1 A PHARMA [Concomitant]
     Dosage: 5 ML, 1X/DAY
  3. SUTENT [Suspect]
     Active Substance: SUNITINIB MALATE
     Indication: METASTATIC RENAL CELL CARCINOMA
     Dosage: 25 MG, CYCLIC (2 WEEKS ON - 1 WEEK OFF SCHEME)
     Route: 048
     Dates: start: 20170209, end: 20170301
  4. ADENURIC [Concomitant]
     Active Substance: FEBUXOSTAT
     Dosage: 80 MG, 1X/DAY
  5. CALCIUM [Concomitant]
     Active Substance: CALCIUM
     Dosage: UNK, 2X/DAY
  6. SUTENT [Suspect]
     Active Substance: SUNITINIB MALATE
     Dosage: 25 MG, CYCLIC
     Dates: start: 20170512, end: 20170525
  7. NITROLINGUAL [Concomitant]
     Active Substance: NITROGLYCERIN
     Indication: BLOOD PRESSURE INCREASED
     Dosage: UNK UNK, AS NEEDED
  8. ASPIRIN. [Concomitant]
     Active Substance: ASPIRIN
     Dosage: 1 DF, DAILY
  9. PANTOPRAZOLE SODIUM. [Concomitant]
     Active Substance: PANTOPRAZOLE SODIUM
     Dosage: 40 MG, 1X/DAY
  10. L THYROXIN WINTHROP [Concomitant]
     Dosage: 150 UG, 1X/DAY
  11. TAVOR (LORAZEPAM) [Concomitant]
     Active Substance: LORAZEPAM
     Dosage: 0.5 UNK, AS NEEDED, MAX 3 PER DAY
  12. ROCALTROL [Concomitant]
     Active Substance: CALCITRIOL
     Dosage: UNK, 1X/DAY
  13. NOVAMINSULFON [Concomitant]
     Active Substance: METAMIZOLE
     Dosage: 1-3 DAILY 1 TABLET AS NEEDED
  14. SEVREDOL [Concomitant]
     Active Substance: MORPHINE
     Dosage: UNK UNK, AS NEEDED UP TO THRICE DAILY
  15. ONDANSETRON AUROBINDO [Concomitant]
     Active Substance: ONDANSETRON HYDROCHLORIDE
     Dosage: 4 MG, AS NEEDED UP TO TWICE PER DAY
  16. SILAPO [Concomitant]
     Dosage: 4000 IU, ON MO, WED, FRI
  17. AMLODIPIN /00972401/ [Concomitant]
     Active Substance: AMLODIPINE BESYLATE
     Dosage: 0.5 DF, 2X/DAY
  18. BELOC-ZOK MITE [Concomitant]
     Active Substance: METOPROLOL SUCCINATE
     Dosage: 47.5 MG, 1X/DAY
  19. VOMEX A [Concomitant]
     Active Substance: DIMENHYDRINATE
     Indication: NAUSEA
     Dosage: UNK UNK, AS NEEDED
  20. SUTENT [Suspect]
     Active Substance: SUNITINIB MALATE
     Dosage: 37.5 MG, CYCLIC
     Dates: start: 20170325, end: 20170403
  21. SUTENT [Suspect]
     Active Substance: SUNITINIB MALATE
     Dosage: 37.5 MG, CYCLIC
     Dates: start: 20170415, end: 20170419
  22. VALSARTAN 1A PHARMA [Concomitant]
     Active Substance: VALSARTAN
     Dosage: 0.5 DF, 2X/DAY
  23. NOVAMINSULFON [Concomitant]
     Active Substance: METAMIZOLE
     Dosage: 500 MG, 1X/DAY
  24. DOMPERIDON [Concomitant]
     Active Substance: DOMPERIDONE
     Dosage: 10 MG, 3X/DAY; IF NO IMPROVEMENT- ONDANSETRON 4 MG 2X1
  25. RENVELA [Concomitant]
     Active Substance: SEVELAMER CARBONATE
     Dosage: 800 MG, 3X/DAY

REACTIONS (7)
  - Drug-induced liver injury [Recovered/Resolved]
  - Thrombocytopenia [Not Recovered/Not Resolved]
  - Blood test abnormal [Recovered/Resolved]
  - Nausea [Recovered/Resolved]
  - Fatigue [Not Recovered/Not Resolved]
  - Depression [Recovered/Resolved]
  - Decreased appetite [Recovered/Resolved]

NARRATIVE: CASE EVENT DATE: 20170216
